FAERS Safety Report 22157244 (Version 1)
Quarter: 2023Q1

REPORT INFORMATION
  Report Type: Spontaneous
  Country: US (occurrence: US)
  Receive Date: 20230330
  Receipt Date: 20230330
  Transmission Date: 20230417
  Serious: Yes (Life-Threatening, Hospitalization)
  Sender: FDA-Public Use
  Company Number: US-MYLANLABS-2023M1033811

PATIENT
  Age: 42 Year
  Sex: Male

DRUGS (2)
  1. FOMEPIZOLE [Suspect]
     Active Substance: FOMEPIZOLE
     Indication: Alcohol poisoning
     Dosage: UNK UNK, BID
     Route: 065
  2. SODIUM BICARBONATE [Suspect]
     Active Substance: SODIUM BICARBONATE
     Indication: Alcohol poisoning
     Dosage: UNK, DRIP
     Route: 042

REACTIONS (1)
  - Drug ineffective [Unknown]
